FAERS Safety Report 5093271-2 (Version None)
Quarter: 2006Q3

REPORT INFORMATION
  Report Type: 
  Country: None (occurrence: None)
  Receive Date: 20060829
  Receipt Date: 20060829
  Transmission Date: 20061208
  Serious: Yes (Hospitalization)
  Sender: FDA-Public Use
  Company Number: None

PATIENT
  Sex: Male
  Weight: 92.5 kg

DRUGS (1)
  1. INDOMETHACIN [Suspect]
     Indication: OSTEOARTHRITIS
     Dosage: 50 MG BID PO
     Route: 048

REACTIONS (4)
  - EROSIVE OESOPHAGITIS [None]
  - HAEMATEMESIS [None]
  - HIATUS HERNIA [None]
  - VOMITING [None]
